FAERS Safety Report 4424375-2 (Version None)
Quarter: 2004Q3

REPORT INFORMATION
  Report Type: 
  Country: None (occurrence: None)
  Receive Date: 20040809
  Receipt Date: 20040809
  Transmission Date: 20050211
  Serious: Yes (Death)
  Sender: FDA-Public Use
  Company Number: None

PATIENT
  Age: 20 Year
  Sex: Male
  Weight: 106.1417 kg

DRUGS (2)
  1. CORICIDIN CHEST CONGESTION AND COUGH (DEXTROMETHORPHAN TABLETS [Suspect]
     Dosage: ORAL
     Route: 048
  2. DIPHENHYDRAMINE HCL [Concomitant]

REACTIONS (4)
  - COMPLETED SUICIDE [None]
  - DRUG ABUSER [None]
  - GUN SHOT WOUND [None]
  - THEFT [None]
